FAERS Safety Report 5390483-5 (Version None)
Quarter: 2007Q3

REPORT INFORMATION
  Report Type: 
  Country: None (occurrence: None)
  Receive Date: 20070712
  Receipt Date: 20070321
  Transmission Date: 20080115
  Serious: Yes (Disabling)
  Sender: FDA-Public Use
  Company Number: 6033183

PATIENT
  Age: 12 Year
  Sex: Female

DRUGS (1)
  1. SERTRALINE [Suspect]
     Indication: ANXIETY
     Dosage: (1 IN 1 D) ORAL
     Route: 048
     Dates: start: 20060209, end: 20061113

REACTIONS (7)
  - DEPRESSION [None]
  - DRUG WITHDRAWAL SYNDROME [None]
  - EMOTIONAL DISORDER [None]
  - HYPERPHAGIA [None]
  - INSOMNIA [None]
  - LETHARGY [None]
  - TIC [None]
